FAERS Safety Report 5890692-2 (Version None)
Quarter: 2008Q3

REPORT INFORMATION
  Report Type: 
  Country: None (occurrence: None)
  Receive Date: 20080918
  Receipt Date: 20080904
  Transmission Date: 20090109
  Serious: Yes (Hospitalization)
  Sender: FDA-Public Use
  Company Number: CIP08001746

PATIENT
  Age: 60 Year
  Sex: Male

DRUGS (3)
  1. FURADANTIN [Suspect]
     Indication: URINARY TRACT INFECTION
     Dosage: ORAL
     Route: 048
  2. METFORMIN (METFORMIN) TABLET [Concomitant]
  3. COAPROVEL 150/12.5 (HYDROCHLOROTHIAZIDE, IRBESARTAN) TABLET [Concomitant]

REACTIONS (3)
  - CHEST DISCOMFORT [None]
  - CHEST PAIN [None]
  - PYREXIA [None]
